FAERS Safety Report 9608615 (Version 2)
Quarter: 2013Q4

REPORT INFORMATION
  Report Type: Spontaneous
  Country: None (occurrence: None)
  Receive Date: 20131007
  Receipt Date: 20131016
  Transmission Date: 20140711
  Serious: Yes (Hospitalization)
  Sender: FDA-Public Use
  Company Number: 2013IL0372

PATIENT
  Age: 23 Year
  Sex: Male

DRUGS (1)
  1. ANAKINRA [Suspect]
     Indication: AUTOINFLAMMATORY DISEASE
     Route: 058
     Dates: start: 20130703, end: 20130724

REACTIONS (2)
  - Cholecystitis acute [None]
  - Treatment noncompliance [None]
